FAERS Safety Report 17210989 (Version 1)
Quarter: 2019Q4

REPORT INFORMATION
  Report Type: Spontaneous
  Country: US (occurrence: US)
  Receive Date: 20191227
  Receipt Date: 20191227
  Transmission Date: 20200122
  Serious: Yes (Other)
  Sender: FDA-Public Use
  Company Number: US-ROCHE-2502946

PATIENT
  Age: 31 Year
  Sex: Male
  Weight: 119 kg

DRUGS (1)
  1. ACTEMRA [Suspect]
     Active Substance: TOCILIZUMAB
     Indication: TAKAYASU^S ARTERITIS
     Dosage: ONGOING:YES
     Route: 042
     Dates: start: 20130101

REACTIONS (4)
  - Hyperlipidaemia [Not Recovered/Not Resolved]
  - Intentional product use issue [Unknown]
  - Lymphoproliferative disorder [Not Recovered/Not Resolved]
  - Off label use [Unknown]

NARRATIVE: CASE EVENT DATE: 201504
